FAERS Safety Report 5855106-7 (Version None)
Quarter: 2008Q3

REPORT INFORMATION
  Report Type: 
  Country: None (occurrence: None)
  Receive Date: 20080822
  Receipt Date: 20080717
  Transmission Date: 20090109
  Serious: No
  Sender: FDA-Public Use
  Company Number: US-ABBOTT-08P-163-0464009-00

PATIENT
  Sex: Female
  Weight: 94.432 kg

DRUGS (4)
  1. SYNTHROID [Suspect]
     Indication: HYPOTHYROIDISM
     Route: 048
     Dates: start: 20080601
  2. IBUPROFEN [Concomitant]
     Indication: MIGRAINE
     Route: 048
  3. CYCLOBENZAPRINE HCL [Concomitant]
     Indication: NECK PAIN
     Route: 048
     Dates: start: 20080325
  4. PETHIDINE HYDROCHLORIDE [Concomitant]
     Indication: NECK PAIN
     Route: 048
     Dates: start: 20080716

REACTIONS (1)
  - ALOPECIA [None]
